FAERS Safety Report 24685800 (Version 1)
Quarter: 2024Q4

REPORT INFORMATION
  Report Type: Spontaneous
  Country: US (occurrence: None)
  Receive Date: 20241129
  Receipt Date: 20241129
  Transmission Date: 20250115
  Serious: Yes (Hospitalization)
  Sender: Public
  Company Number: None

PATIENT
  Age: 58 Year
  Sex: Female

DRUGS (6)
  1. STELARA [Suspect]
     Active Substance: USTEKINUMAB
     Indication: Crohn^s disease
     Dates: start: 20240308
  2. IRON TAB 65MG [Concomitant]
  3. METFORMIN [Concomitant]
     Active Substance: METFORMIN HYDROCHLORIDE
  4. PROTONIX TAB 20MG [Concomitant]
  5. VITAMIN B-12SUB 1000MGG [Concomitant]
  6. VITAMIN D3 GAP 10000UNT [Concomitant]

REACTIONS (3)
  - Intestinal obstruction [None]
  - Condition aggravated [None]
  - Crohn^s disease [None]

NARRATIVE: CASE EVENT DATE: 20240601
